FAERS Safety Report 25259857 (Version 3)
Quarter: 2025Q3

REPORT INFORMATION
  Report Type: Spontaneous
  Country: US (occurrence: US)
  Receive Date: 20250501
  Receipt Date: 20250810
  Transmission Date: 20251021
  Serious: Yes (Hospitalization, Other)
  Sender: ALEXION PHARMACEUTICALS
  Company Number: US-AstraZeneca-CH-00856803A

PATIENT
  Age: 78 Year
  Sex: Female

DRUGS (3)
  1. FARXIGA [Suspect]
     Active Substance: DAPAGLIFLOZIN PROPANEDIOL
     Indication: Type 2 diabetes mellitus
     Dosage: 5 MILLIGRAM, QD
     Dates: start: 20231115, end: 20250209
  2. FARXIGA [Suspect]
     Active Substance: DAPAGLIFLOZIN PROPANEDIOL
     Indication: Acute kidney injury
  3. CRESTOR [Suspect]
     Active Substance: ROSUVASTATIN CALCIUM
     Route: 065

REACTIONS (73)
  - Urinary tract infection [Recovered/Resolved]
  - Sepsis [Recovered/Resolved]
  - Pyelonephritis [Recovered/Resolved]
  - Acute respiratory failure [Unknown]
  - Nephrolithiasis [Unknown]
  - Hyperbilirubinaemia [Unknown]
  - Hypokalaemia [Unknown]
  - Deafness [Unknown]
  - Hyperglycaemia [Unknown]
  - Nausea [Unknown]
  - Pyrexia [Unknown]
  - Malaise [Unknown]
  - Urine odour abnormal [Unknown]
  - Vomiting [Unknown]
  - Leukocytosis [Unknown]
  - Blood lactic acid increased [Unknown]
  - Respiratory rate increased [Unknown]
  - Tachycardia [Unknown]
  - Hypotension [Unknown]
  - Iron deficiency anaemia [Unknown]
  - Urinary incontinence [Unknown]
  - Obesity [Unknown]
  - Restless legs syndrome [Unknown]
  - White blood cell count increased [Unknown]
  - Mean cell volume increased [Unknown]
  - Haemoglobin decreased [Unknown]
  - Red cell distribution width increased [Unknown]
  - Platelet count decreased [Unknown]
  - Neutrophil count increased [Unknown]
  - Lymphocyte count decreased [Unknown]
  - Monocyte count decreased [Unknown]
  - Eosinophil count decreased [Unknown]
  - Neutrophil count increased [Unknown]
  - N-terminal prohormone brain natriuretic peptide increased [Unknown]
  - Lipase decreased [Unknown]
  - Carbon dioxide abnormal [Unknown]
  - Blood urea increased [Unknown]
  - Blood bilirubin increased [Unknown]
  - Blood alkaline phosphatase increased [Unknown]
  - Blood phosphorus decreased [Unknown]
  - Urine abnormality [Unknown]
  - Blood ketone body [Unknown]
  - Specific gravity urine increased [Unknown]
  - pH urine increased [Unknown]
  - Protein urine [Unknown]
  - Blood urine present [Unknown]
  - White blood cells urine positive [Unknown]
  - White blood cells urine positive [Unknown]
  - Blood sodium decreased [Unknown]
  - Red blood cell count decreased [Unknown]
  - Haemoglobin decreased [Unknown]
  - Haematocrit decreased [Unknown]
  - Anion gap decreased [Unknown]
  - Blood calcium decreased [Unknown]
  - Physical deconditioning [Unknown]
  - Fungal skin infection [Unknown]
  - Cystitis [Unknown]
  - Dysuria [Unknown]
  - Wound haemorrhage [Unknown]
  - Abdominal pain [Unknown]
  - Asthenia [Unknown]
  - Hypotension [Unknown]
  - Haemoglobin [Unknown]
  - Vitamin D deficiency [Unknown]
  - Constipation [Unknown]
  - Hyponatraemia [Unknown]
  - Nodule [Unknown]
  - Neoplasm [Unknown]
  - Multiple allergies [Unknown]
  - Arthralgia [Unknown]
  - Arthritis [Unknown]
  - Pallor [Unknown]
  - Contusion [Unknown]

NARRATIVE: CASE EVENT DATE: 20241201
